FAERS Safety Report 26184186 (Version 1)
Quarter: 2025Q4

REPORT INFORMATION
  Report Type: Spontaneous
  Country: KR (occurrence: KR)
  Receive Date: 20251222
  Receipt Date: 20251222
  Transmission Date: 20260118
  Serious: Yes (Hospitalization, Other)
  Sender: CELLTRION
  Company Number: KR-CELLTRION INC.-2025KR045178

PATIENT

DRUGS (5)
  1. EYDENZELT [Suspect]
     Active Substance: AFLIBERCEPT-BOAV
     Indication: Macular oedema
     Dosage: UNK, INTRAVITREAL INJECTION, ONCE
     Dates: start: 20250116
  2. EYDENZELT [Suspect]
     Active Substance: AFLIBERCEPT-BOAV
     Dosage: ONE VIAL
     Dates: start: 20250227
  3. EYDENZELT [Suspect]
     Active Substance: AFLIBERCEPT-BOAV
     Dosage: ONE VIAL
     Dates: start: 20250424
  4. EYDENZELT [Suspect]
     Active Substance: AFLIBERCEPT-BOAV
     Dosage: ONE VIAL
     Dates: start: 20250910
  5. EYDENZELT [Suspect]
     Active Substance: AFLIBERCEPT-BOAV
     Dosage: UNK
     Dates: start: 20251119

REACTIONS (1)
  - Cholelithiasis [Recovered/Resolved]

NARRATIVE: CASE EVENT DATE: 20251105
